FAERS Safety Report 17723756 (Version 5)
Quarter: 2020Q3

REPORT INFORMATION
  Report Type: Report from Study
  Country: DK (occurrence: DK)
  Receive Date: 20200429
  Receipt Date: 20200901
  Transmission Date: 20201102
  Serious: Yes (Hospitalization)
  Sender: FDA-Public Use
  Company Number: DK-JNJFOC-20200432328

PATIENT
  Age: 11 Year
  Sex: Female
  Weight: 47.7 kg

DRUGS (6)
  1. REMICADE [Suspect]
     Active Substance: INFLIXIMAB
     Indication: COLITIS ULCERATIVE
     Route: 042
     Dates: start: 20121022, end: 20150619
  2. SIMPONI [Concomitant]
     Active Substance: GOLIMUMAB
     Indication: UVEITIS
     Dates: start: 20191115
  3. ENTYVIO [Concomitant]
     Active Substance: VEDOLIZUMAB
     Dates: start: 20160808, end: 20171204
  4. CELLCEPT [Concomitant]
     Active Substance: MYCOPHENOLATE MOFETIL\MYCOPHENOLATE MOFETIL HYDROCHLORIDE
     Indication: UVEITIS
  5. PREDNISONE. [Concomitant]
     Active Substance: PREDNISONE
  6. MYCOPHENOLATE MOFETIL. [Concomitant]
     Active Substance: MYCOPHENOLATE MOFETIL

REACTIONS (2)
  - Ileus [Recovered/Resolved with Sequelae]
  - Colitis ulcerative [Recovered/Resolved with Sequelae]

NARRATIVE: CASE EVENT DATE: 20200404
